FAERS Safety Report 6679908-2 (Version None)
Quarter: 2010Q2

REPORT INFORMATION
  Report Type: 
  Country: None (occurrence: None)
  Receive Date: 20100413
  Receipt Date: 20100330
  Transmission Date: 20101027
  Serious: Yes (Death)
  Sender: FDA-Public Use
  Company Number: US-ELI_LILLY_AND_COMPANY-US201003008672

PATIENT
  Age: 78 Year
  Sex: Male

DRUGS (2)
  1. EFFIENT [Suspect]
     Indication: NO THERAPEUTIC RESPONSE
     Dosage: 60 MG, LOADING DOSE
  2. EFFIENT [Suspect]
     Dosage: 20 MG, DAILY (1/D)

REACTIONS (4)
  - CARDIAC FAILURE [None]
  - MEDICATION ERROR [None]
  - NO THERAPEUTIC RESPONSE [None]
  - OVERDOSE [None]
